FAERS Safety Report 23964244 (Version 1)
Quarter: 2024Q2

REPORT INFORMATION
  Report Type: Spontaneous
  Country: US (occurrence: US)
  Receive Date: 20240612
  Receipt Date: 20240612
  Transmission Date: 20240716
  Serious: No
  Sender: FDA-Public Use
  Company Number: US-RIGEL Pharmaceuticals, INC-2023FOS001380

PATIENT
  Sex: Female
  Weight: 108.84 kg

DRUGS (12)
  1. TAVALISSE [Suspect]
     Active Substance: FOSTAMATINIB
     Indication: Immune thrombocytopenia
     Dosage: 75 MG, QAM
     Route: 048
     Dates: start: 20211011
  2. TAVALISSE [Suspect]
     Active Substance: FOSTAMATINIB
     Dosage: 75 MG, QPM
     Route: 048
     Dates: start: 20211011
  3. LOSARTAN [Concomitant]
     Active Substance: LOSARTAN
     Indication: Product used for unknown indication
     Dosage: 100 MG, QD
  4. METOPROLOL [Concomitant]
     Active Substance: METOPROLOL
     Indication: Product used for unknown indication
     Dosage: 50 MG, BID
  5. OMEGA-3 FATTY ACIDS [Concomitant]
     Active Substance: OMEGA-3 FATTY ACIDS
     Indication: Product used for unknown indication
     Dosage: 1000 MG, QD
  6. LUTEIN [Concomitant]
     Active Substance: LUTEIN
     Indication: Product used for unknown indication
     Dosage: 20 MG, QD
  7. VITAMIN D NOS [Concomitant]
     Active Substance: CHOLECALCIFEROL\ERGOCALCIFEROL
     Indication: Product used for unknown indication
     Dosage: 2000 UNIT
  8. VITAMIN B12 [Concomitant]
     Active Substance: CYANOCOBALAMIN
     Indication: Product used for unknown indication
     Dosage: 100 MICROGRAM, QD
  9. THERAWORX RELIEF [Concomitant]
     Indication: Product used for unknown indication
     Dosage: EXTERNAL FOAM, PRN
  10. NERVIVE NERVE RELIEF [Concomitant]
     Indication: Product used for unknown indication
     Dosage: PM, PRN
  11. VITAMINS [Concomitant]
     Active Substance: VITAMINS
     Indication: Product used for unknown indication
     Dosage: UNK, QD
  12. HAIR, SKIN + NAILS [BIOTIN] [Concomitant]
     Indication: Product used for unknown indication
     Dosage: UNK, QD

REACTIONS (4)
  - Abdominal distension [Unknown]
  - Arthritis [Unknown]
  - Product prescribing issue [Unknown]
  - Diarrhoea [Unknown]
